FAERS Safety Report 5195964-5 (Version None)
Quarter: 2006Q4

REPORT INFORMATION
  Report Type: 
  Country: None (occurrence: None)
  Receive Date: 20061227
  Receipt Date: 20061214
  Transmission Date: 20070319
  Serious: Yes (Hospitalization, Other)
  Sender: FDA-Public Use
  Company Number: 163-21880-06120874

PATIENT
  Age: 57 Year
  Sex: Female

DRUGS (1)
  1. REVLIMID [Suspect]
     Indication: MULTIPLE MYELOMA
     Dosage: 25 MG, 1 IN 1 D, ORAL
     Route: 048
     Dates: start: 20061121

REACTIONS (4)
  - BLOOD HUMAN CHORIONIC GONADOTROPIN INCREASED [None]
  - NON-CONSUMMATION [None]
  - PREGNANCY TEST URINE POSITIVE [None]
  - PULMONARY EMBOLISM [None]
